FAERS Safety Report 17094278 (Version 2)
Quarter: 2019Q4

REPORT INFORMATION
  Report Type: Spontaneous
  Country: GB (occurrence: GB)
  Receive Date: 20191129
  Receipt Date: 20191218
  Transmission Date: 20200122
  Serious: Yes (Death, Hospitalization, Other)
  Sender: FDA-Public Use
  Company Number: GB-ALEMBIC PHARMACUETICALS LIMITED-2019SCAL000955

PATIENT

DRUGS (1)
  1. LINEZOLID. [Suspect]
     Active Substance: LINEZOLID
     Indication: INFECTION
     Dosage: 600 MILLIGRAM, BID FOR 10 DAYS

REACTIONS (16)
  - Respiratory distress [Recovered/Resolved]
  - Oxygen saturation decreased [Recovered/Resolved]
  - Depressed level of consciousness [Recovered/Resolved]
  - Blood pressure decreased [Recovered/Resolved]
  - Coma scale abnormal [Recovered/Resolved]
  - Acute lung injury [Fatal]
  - Tachycardia [Recovered/Resolved]
  - Hypoglycaemia [Recovered/Resolved]
  - Aspiration [Unknown]
  - Metabolic acidosis [Recovered/Resolved]
  - Hyponatraemia [Recovered/Resolved]
  - Dyspnoea [Unknown]
  - Somnolence [Recovered/Resolved]
  - Inappropriate antidiuretic hormone secretion [Recovered/Resolved]
  - Bone marrow failure [Unknown]
  - Toxicity to various agents [Recovered/Resolved]
